FAERS Safety Report 18445190 (Version 2)
Quarter: 2020Q4

REPORT INFORMATION
  Report Type: Spontaneous
  Country: CH (occurrence: CH)
  Receive Date: 20201030
  Receipt Date: 20201124
  Transmission Date: 20210114
  Serious: No
  Sender: FDA-Public Use
  Company Number: CH-PFIZER INC-2020408722

PATIENT
  Sex: Female

DRUGS (1)
  1. SAYANA [Suspect]
     Active Substance: MEDROXYPROGESTERONE
     Dosage: UNK

REACTIONS (4)
  - Syringe issue [Unknown]
  - Poor quality device used [Unknown]
  - Product administration interrupted [Unknown]
  - Device mechanical issue [Unknown]
